FAERS Safety Report 9084596 (Version 1)
Quarter: 2013Q1

REPORT INFORMATION
  Report Type: Spontaneous
  Country: US (occurrence: US)
  Receive Date: 20130131
  Receipt Date: 20130131
  Transmission Date: 20140127
  Serious: Yes (Other)
  Sender: FDA-Public Use
  Company Number: US-AMGEN-USASP2013005748

PATIENT
  Age: 70 Year
  Sex: Female

DRUGS (2)
  1. PROLIA [Suspect]
     Indication: OSTEOPOROSIS POSTMENOPAUSAL
     Dosage: UNK
     Dates: start: 20120717
  2. THYROID THERAPY [Concomitant]
     Indication: THYROID DISORDER
     Dosage: 0.1 MUG, UNK

REACTIONS (9)
  - Lower limb fracture [Recovered/Resolved]
  - Fall [Unknown]
  - Pain [Unknown]
  - Mobility decreased [Unknown]
  - Gait disturbance [Unknown]
  - Muscle spasms [Unknown]
  - Musculoskeletal pain [Unknown]
  - Myalgia [Unknown]
  - Pain in extremity [Unknown]
